FAERS Safety Report 8407322-8 (Version None)
Quarter: 2012Q2

REPORT INFORMATION
  Report Type: 
  Country: None (occurrence: None)
  Receive Date: 20120604
  Receipt Date: 20120530
  Transmission Date: 20120825
  Serious: Yes (Hospitalization)
  Sender: FDA-Public Use
  Company Number: FR-PFIZER INC-2012129573

PATIENT
  Age: 90 Year
  Sex: Female

DRUGS (7)
  1. RAMIPRIL [Concomitant]
     Dosage: UNK
  2. PENTOXIFYLLINE [Suspect]
     Dosage: 1 DF, 1X/DAY
     Route: 048
     Dates: start: 20120101, end: 20120201
  3. ALDACTONE [Suspect]
     Dosage: 0.5 DF, 1X/DAY
     Route: 048
  4. BISOPROLOL FUMARATE [Concomitant]
  5. DIGOXIN [Suspect]
     Dosage: 1 DF, 1X/DAY
     Route: 048
  6. FOLIC ACID [Concomitant]
     Dosage: UNK
  7. ACETAMINOPHEN [Concomitant]

REACTIONS (3)
  - SUBARACHNOID HAEMORRHAGE [None]
  - INTERNATIONAL NORMALISED RATIO INCREASED [None]
  - RENAL FAILURE ACUTE [None]
